FAERS Safety Report 9144642 (Version 1)
Quarter: 2013Q1

REPORT INFORMATION
  Report Type: Report from Study
  Country: US (occurrence: US)
  Receive Date: 20130306
  Receipt Date: 20130306
  Transmission Date: 20140127
  Serious: Yes (Other)
  Sender: FDA-Public Use
  Company Number: US-ABBOTT-13P-163-1056665-00

PATIENT
  Age: 53 None
  Sex: Female
  Weight: 72.64 kg

DRUGS (1)
  1. LUPRON DEPOT [Suspect]
     Indication: ENDOMETRIOSIS
     Dates: start: 20121113, end: 201302

REACTIONS (2)
  - Hysterectomy [Recovered/Resolved]
  - Endometriosis [Unknown]
